FAERS Safety Report 6202037-9 (Version None)
Quarter: 2009Q2

REPORT INFORMATION
  Report Type: 
  Country: None (occurrence: None)
  Receive Date: 20090526
  Receipt Date: 20090518
  Transmission Date: 20091009
  Serious: Yes (Other)
  Sender: FDA-Public Use
  Company Number: B0531689A

PATIENT
  Age: 25 Year
  Sex: Female

DRUGS (3)
  1. AUGMENTIN '125' [Suspect]
     Route: 048
     Dates: start: 20080705, end: 20080717
  2. DEPON [Suspect]
  3. PONSTAN [Suspect]
     Route: 065

REACTIONS (6)
  - ABORTION INDUCED [None]
  - AMNIOTIC CAVITY DISORDER [None]
  - DRUG EXPOSURE DURING PREGNANCY [None]
  - FALL [None]
  - JOINT INJURY [None]
  - LIMB INJURY [None]
